FAERS Safety Report 24409007 (Version 1)
Quarter: 2024Q4

REPORT INFORMATION
  Report Type: Spontaneous
  Country: AU (occurrence: None)
  Receive Date: 20241008
  Receipt Date: 20241008
  Transmission Date: 20250115
  Serious: Yes (Other)
  Sender: MDD OPERATIONS
  Company Number: AU-MDD US Operations-MDD202410-003672

PATIENT
  Age: 70 Year
  Sex: Female

DRUGS (1)
  1. APOMORPHINE HYDROCHLORIDE [Suspect]
     Active Substance: APOMORPHINE HYDROCHLORIDE
     Indication: Product used for unknown indication
     Dosage: NOT PROVIDED

REACTIONS (3)
  - Cerebrovascular accident [Unknown]
  - Central nervous system lesion [Unknown]
  - Dysarthria [Unknown]
